FAERS Safety Report 6589394-9 (Version None)
Quarter: 2010Q1

REPORT INFORMATION
  Report Type: 
  Country: None (occurrence: None)
  Receive Date: 20100218
  Receipt Date: 20100211
  Transmission Date: 20100710
  Serious: Yes (Other)
  Sender: FDA-Public Use
  Company Number: US-ABBOTT-10P-163-0625851-00

PATIENT
  Sex: Male

DRUGS (1)
  1. NIASPAN [Suspect]
     Indication: LIPOPROTEIN (A) INCREASED

REACTIONS (3)
  - COUGH [None]
  - HYPOAESTHESIA ORAL [None]
  - SWELLING FACE [None]
